FAERS Safety Report 13720149 (Version 1)
Quarter: 2017Q3

REPORT INFORMATION
  Report Type: Other
  Country: DE (occurrence: DE)
  Receive Date: 20170706
  Receipt Date: 20170706
  Transmission Date: 20171127
  Serious: No
  Sender: FDA-Public Use
  Company Number: DE-LUPIN PHARMACEUTICALS INC.-E2B_00006225

PATIENT
  Age: 72 Year
  Sex: Male
  Weight: 89 kg

DRUGS (1)
  1. SIMVASTATIN. [Suspect]
     Active Substance: SIMVASTATIN
     Indication: CAROTID ARTERIOSCLEROSIS
     Dosage: 20 MG,UNK,UNKNOWN
     Route: 048
     Dates: start: 2007

REACTIONS (1)
  - Myalgia [Unknown]

NARRATIVE: CASE EVENT DATE: 20160822
